FAERS Safety Report 9374435 (Version 1)
Quarter: 2013Q2

REPORT INFORMATION
  Report Type: Spontaneous
  Country: GB (occurrence: None)
  Receive Date: 20130624
  Receipt Date: 20130624
  Transmission Date: 20140414
  Serious: Yes (Other)
  Sender: FDA-Public Use
  Company Number: AUR-APL-2013-04903

PATIENT
  Age: 68 Year
  Sex: Male
  Weight: 75 kg

DRUGS (5)
  1. TAMSULOSIN [Suspect]
     Indication: PROSTATOMEGALY
     Route: 048
     Dates: start: 20121015, end: 20121102
  2. FEBUXOSTAT (FEBUXOSTAT) [Concomitant]
  3. FEXOFENDADINE (FEXOFENADINE) [Concomitant]
  4. PHENOBARBITAL (PHENOBARBITAL) [Concomitant]
  5. PRIMIDONE (PRIMIDONE) [Concomitant]

REACTIONS (3)
  - Erythema multiforme [None]
  - Stevens-Johnson syndrome [None]
  - Blister [None]
